FAERS Safety Report 5085974-0 (Version None)
Quarter: 2006Q3

REPORT INFORMATION
  Report Type: 
  Country: None (occurrence: None)
  Receive Date: 20060817
  Receipt Date: 20060802
  Transmission Date: 20061208
  Serious: Yes (Hospitalization, Other)
  Sender: FDA-Public Use
  Company Number: DEU-2006-0002189

PATIENT
  Age: 79 Year
  Sex: Female

DRUGS (2)
  1. OXYGESIC (OXYCODONE HYDROCHLORIDE) PROLONGED-RELEASE TABLET [Suspect]
     Indication: PROCEDURAL PAIN
     Dosage: SEE IMAGE, ORAL
     Route: 048
     Dates: start: 20060504
  2. IBUPROFEN [Concomitant]

REACTIONS (3)
  - HYPOKALAEMIA [None]
  - POSTOPERATIVE ILEUS [None]
  - TACHYARRHYTHMIA [None]
